FAERS Safety Report 4644423-4 (Version None)
Quarter: 2005Q2

REPORT INFORMATION
  Report Type: 
  Country: None (occurrence: None)
  Receive Date: 20050331
  Receipt Date: 20041206
  Transmission Date: 20051028
  Serious: No
  Sender: FDA-Public Use
  Company Number: 04P-163-0282522-00

PATIENT
  Age: 55 Year
  Sex: Female
  Weight: 72.5755 kg

DRUGS (8)
  1. HUMIRA [Suspect]
     Indication: RHEUMATOID ARTHRITIS
     Dosage: 40 MG, 1 IN 2 WK, SUBCUTANEOUS
     Route: 058
     Dates: start: 20040311
  2. LEKOVIT CA [Concomitant]
  3. TRANYLCYPROMINE SULFATE [Concomitant]
  4. FOLIC ACID [Concomitant]
  5. FLUTICASONE PROPIONATE [Concomitant]
  6. LEVOTHYROXINE SODIUM [Concomitant]
  7. ALPRAZOLAM [Concomitant]
  8. ALENDRONATE SODIUM [Concomitant]

REACTIONS (1)
  - SMEAR CERVIX ABNORMAL [None]
